FAERS Safety Report 4354359-4 (Version None)
Quarter: 2004Q2

REPORT INFORMATION
  Report Type: 
  Country: None (occurrence: None)
  Receive Date: 20040506
  Receipt Date: 20040426
  Transmission Date: 20050107
  Serious: Yes (Death, Other)
  Sender: FDA-Public Use
  Company Number: US-MERCK-0405USA00267

PATIENT

DRUGS (13)
  1. NEUPOGEN [Concomitant]
     Route: 065
  2. INTERFERON ALFA [Concomitant]
     Route: 065
  3. ZOFRAN [Concomitant]
     Route: 042
  4. VINBLASTINE SULFATE [Concomitant]
     Route: 065
  5. ALDESLEUKIN [Concomitant]
     Route: 042
  6. ALDESLEUKIN [Concomitant]
     Route: 042
  7. ALDESLEUKIN [Concomitant]
     Route: 042
  8. ALDESLEUKIN [Concomitant]
     Route: 042
  9. EMEND [Suspect]
     Indication: PROPHYLAXIS OF NAUSEA AND VOMITING
     Route: 048
  10. EMEND [Suspect]
     Route: 048
  11. EMEND [Suspect]
     Route: 048
  12. CISPLATIN [Concomitant]
     Route: 065
  13. DACARBAZINE [Concomitant]
     Route: 065

REACTIONS (3)
  - BACTERIAL SEPSIS [None]
  - DRUG INTERACTION [None]
  - PANCYTOPENIA [None]
